FAERS Safety Report 16091168 (Version 2)
Quarter: 2019Q2

REPORT INFORMATION
  Report Type: Spontaneous
  Country: ES (occurrence: ES)
  Receive Date: 20190319
  Receipt Date: 20190520
  Transmission Date: 20190711
  Serious: Yes (Other)
  Sender: FDA-Public Use
  Company Number: ES-BAYER-2019-022118

PATIENT
  Age: 57 Year
  Sex: Male

DRUGS (2)
  1. NEXAVAR [Suspect]
     Active Substance: SORAFENIB
  2. LOW MOLECULAR WEIGHT HEPARIN [Concomitant]
     Active Substance: UNSPECIFIED INGREDIENT
     Indication: DEEP VEIN THROMBOSIS

REACTIONS (14)
  - Performance status decreased [None]
  - Asthenia [None]
  - Somnolence [None]
  - Ascites [Recovered/Resolved]
  - Rash [None]
  - Portal hypertension [None]
  - Hepatic failure [None]
  - Chronic gastritis [None]
  - Oedema [None]
  - Hepatic infarction [None]
  - Ascites [None]
  - Gastrointestinal haemorrhage [None]
  - Dry skin [None]
  - Abdominal distension [None]
